FAERS Safety Report 10057982 (Version 1)
Quarter: 2014Q2

REPORT INFORMATION
  Report Type: Spontaneous
  Country: US (occurrence: None)
  Receive Date: 20140403
  Receipt Date: 20140403
  Transmission Date: 20141212
  Serious: Yes (Hospitalization)
  Sender: FDA-Public Use
  Company Number: None

PATIENT
  Age: 21 Year
  Sex: Male
  Weight: 83 kg

DRUGS (1)
  1. DIETARY SUPPLEMENT [Suspect]
     Indication: INADEQUATE DIET
     Dosage: 1 SCOOP
     Route: 048

REACTIONS (6)
  - Rhabdomyolysis [None]
  - Insomnia [None]
  - Psychotic disorder [None]
  - Encephalopathy [None]
  - Schizophrenia, paranoid type [None]
  - Hypersensitivity [None]
